FAERS Safety Report 9137829 (Version 3)
Quarter: 2013Q2

REPORT INFORMATION
  Report Type: Spontaneous
  Country: US (occurrence: US)
  Receive Date: 20130304
  Receipt Date: 20130419
  Transmission Date: 20140414
  Serious: Yes (Life-Threatening, Hospitalization, Other)
  Sender: FDA-Public Use
  Company Number: US-PFIZER INC-2013072313

PATIENT
  Age: 54 Year
  Sex: Female
  Weight: 97.96 kg

DRUGS (4)
  1. ZOLOFT [Suspect]
     Indication: DEPRESSION
     Dosage: HALF A TABLET, 2X/DAY
     Dates: start: 2003
  2. LIPITOR [Suspect]
     Indication: HYPERLIPIDAEMIA
     Dosage: 40MG DAILY
     Dates: start: 2004
  3. NEURONTIN [Suspect]
     Indication: FIBROMYALGIA
     Dosage: 300 MG, 3X/DAY
     Dates: start: 2004
  4. CELEBREX [Suspect]
     Indication: BACK PAIN
     Dosage: 200MG DAILY

REACTIONS (11)
  - Intentional overdose [Unknown]
  - Coma [Not Recovered/Not Resolved]
  - Respiratory arrest [Not Recovered/Not Resolved]
  - Brain death [Not Recovered/Not Resolved]
  - Diabetes mellitus [Unknown]
  - Influenza [Not Recovered/Not Resolved]
  - Malaise [Not Recovered/Not Resolved]
  - Pneumonia pneumococcal [Not Recovered/Not Resolved]
  - Septic shock [Unknown]
  - Off label use [Unknown]
  - Blood cholesterol increased [Unknown]
